FAERS Safety Report 7341221-8 (Version None)
Quarter: 2011Q1

REPORT INFORMATION
  Report Type: 
  Country: None (occurrence: None)
  Receive Date: 20110309
  Receipt Date: 20110301
  Transmission Date: 20110831
  Serious: Yes (Other)
  Sender: FDA-Public Use
  Company Number: US-BRISTOL-MYERS SQUIBB COMPANY-15578834

PATIENT
  Age: 45 Year
  Sex: Female
  Weight: 104 kg

DRUGS (14)
  1. FISH OIL [Concomitant]
  2. VITAMIN D [Concomitant]
  3. AVALIDE [Suspect]
     Indication: HYPERTENSION
     Dosage: TAKEN FOR 8-10 YEARS
  4. METOPROLOL TARTRATE [Concomitant]
  5. LORTAB [Suspect]
     Indication: NERVE INJURY
     Dosage: 1 DF = 5/500 MG,
  6. ASPIRIN [Concomitant]
  7. LUTEIN [Concomitant]
  8. VITAMIN B-12 [Concomitant]
  9. VITAMIN B1 TAB [Concomitant]
  10. VERAMYST [Concomitant]
  11. LYRICA [Suspect]
     Indication: NERVE INJURY
  12. ZINC [Concomitant]
  13. FEXOFENADINE HCL [Concomitant]
  14. NEXIUM [Concomitant]

REACTIONS (4)
  - PAIN [None]
  - NERVE INJURY [None]
  - HYPOAESTHESIA [None]
  - WEIGHT INCREASED [None]
